FAERS Safety Report 4655931-4 (Version None)
Quarter: 2005Q2

REPORT INFORMATION
  Report Type: 
  Country: None (occurrence: None)
  Receive Date: 20050509
  Receipt Date: 20050421
  Transmission Date: 20051028
  Serious: Yes (Life-Threatening, Hospitalization)
  Sender: FDA-Public Use
  Company Number: DE-BRISTOL-MYERS SQUIBB COMPANY-12947214

PATIENT
  Age: 56 Year
  Sex: Female
  Weight: 64 kg

DRUGS (3)
  1. ENDOXAN [Suspect]
     Indication: BREAST CANCER
     Dosage: FROM DAY 1-14, CYCLIC
     Route: 048
  2. EPIRUBICIN [Suspect]
     Indication: BREAST CANCER
     Route: 042
     Dates: start: 20040908, end: 20040915
  3. FLUOROURACIL [Suspect]
     Indication: BREAST CANCER
     Route: 042
     Dates: start: 20040908, end: 20040915

REACTIONS (7)
  - ACUTE RESPIRATORY DISTRESS SYNDROME [None]
  - AZOTAEMIA [None]
  - HEPATIC FAILURE [None]
  - PANCYTOPENIA [None]
  - PNEUMONIA [None]
  - PULMONARY EMBOLISM [None]
  - SEPSIS [None]
